FAERS Safety Report 5242260-3 (Version None)
Quarter: 2007Q1

REPORT INFORMATION
  Report Type: 
  Country: None (occurrence: None)
  Receive Date: 20070216
  Receipt Date: 20070216
  Transmission Date: 20070707
  Serious: Yes (Hospitalization)
  Sender: FDA-Public Use
  Company Number: None

PATIENT
  Age: 72 Year
  Sex: Male
  Weight: 78.9259 kg

DRUGS (14)
  1. ACETAMINOPHEN AND HYDROCODONE BITARTRATE [Suspect]
     Indication: SPINAL COLUMN STENOSIS
     Dosage: 1 TAB  QID  PO
     Route: 048
     Dates: start: 20060720, end: 20070208
  2. OXYCODONE HCL AND ACETAMINOPHEN [Suspect]
     Indication: SPINAL COLUMN STENOSIS
     Dosage: 1 TAB  HS  PO
     Route: 048
     Dates: start: 20070208, end: 20070215
  3. CARBIDOPA AND LEVODOPA [Concomitant]
  4. CLOPIDOGREL [Concomitant]
  5. DIAZEPAM [Concomitant]
  6. SENOKOT [Concomitant]
  7. FELODIPINE [Concomitant]
  8. ISOSORBIDE DINITRATE [Concomitant]
  9. LAMOTRIGINE [Concomitant]
  10. LISINOPRIL [Concomitant]
  11. ROXICET [Concomitant]
  12. TERAZOSIN HCL [Concomitant]
  13. VENLAFAXINE HCL [Concomitant]
  14. LORTAB [Concomitant]

REACTIONS (2)
  - ABDOMINAL PAIN [None]
  - CONSTIPATION [None]
